FAERS Safety Report 6058022-3 (Version None)
Quarter: 2009Q1

REPORT INFORMATION
  Report Type: 
  Country: None (occurrence: None)
  Receive Date: 20090127
  Receipt Date: 20090122
  Transmission Date: 20090719
  Serious: Yes (Death, Life-Threatening, Hospitalization)
  Sender: FDA-Public Use
  Company Number: CLOF-1000397

PATIENT
  Age: 24 Year
  Sex: Male
  Weight: 63.7 kg

DRUGS (29)
  1. CLOLAR [Suspect]
     Indication: ACUTE MYELOID LEUKAEMIA
     Dosage: 76 MG, QDX5, INTRAVENOUS
     Route: 042
     Dates: start: 20081117, end: 20081121
  2. VINORELBINE TARTRATE [Suspect]
     Indication: ACUTE MYELOID LEUKAEMIA
     Dosage: 38 MG, ONCE, INTRAVENOUS
     Route: 042
     Dates: start: 20081114, end: 20081114
  3. THIOTEPA [Suspect]
     Indication: ACUTE MYELOID LEUKAEMIA
     Dosage: 29 MG, ONCE, INTRAVENOUS : 38 MG, ONCE, INTRAVENOUS : 38 MG, ONCE, INTRAVENOUS
     Route: 042
     Dates: start: 20081116, end: 20081116
  4. THIOTEPA [Suspect]
     Indication: ACUTE MYELOID LEUKAEMIA
     Dosage: 29 MG, ONCE, INTRAVENOUS : 38 MG, ONCE, INTRAVENOUS : 38 MG, ONCE, INTRAVENOUS
     Route: 042
     Dates: start: 20081121, end: 20081121
  5. THIOTEPA [Suspect]
     Indication: ACUTE MYELOID LEUKAEMIA
     Dosage: 29 MG, ONCE, INTRAVENOUS : 38 MG, ONCE, INTRAVENOUS : 38 MG, ONCE, INTRAVENOUS
     Route: 042
     Dates: start: 20081128, end: 20081128
  6. TOPOTECAN HYDROCHLORIDE [Suspect]
     Indication: ACUTE MYELOID LEUKAEMIA
     Dosage: 1.9 MG, QDX5, INTRAVENOUS
     Route: 042
     Dates: start: 20081114, end: 20081118
  7. DECADRON [Suspect]
     Indication: DRUG USE FOR UNKNOWN INDICATION
     Dosage: 4 MG, QD, ORAL
     Route: 048
     Dates: start: 20081114, end: 20081119
  8. RANITIDINE [Concomitant]
  9. FILGRASTIM (FILGRASTIM) [Concomitant]
  10. VORICONAZOLE (VORICONAZOLE) [Concomitant]
  11. BACTRIM [Concomitant]
  12. ACYCLOVIR [Concomitant]
  13. LEVOFLOXACIN [Concomitant]
  14. CYTARABINE [Concomitant]
  15. HYDROCORTISONE SODIUM SUCCINATE [Concomitant]
  16. ALLOPURINOL [Concomitant]
  17. HEPARIN SODIUM [Concomitant]
  18. ONDANSETRON HCL [Concomitant]
  19. LORAZEPAM [Concomitant]
  20. POLYETHYLENE GLYCOL (MARCOGOL) [Concomitant]
  21. HYDROXYZINE [Concomitant]
  22. DOCUSATE SODIUM (DOCUSATE SODIUM) [Concomitant]
  23. SENNOSIDE (SENNOSIDE A+B CALCIUM) [Concomitant]
  24. CLOTRIMAZOLE [Concomitant]
  25. LACTATED RINGERS (CALCIUM CHLORIDE DIHYDRATE, POTASSIUM CHLORIDE, SODI [Concomitant]
  26. DIPHENYDRAMINE HYDROCHLORIDE (DIPHENYDRAMINE HYDROCHLORIDE) [Concomitant]
  27. ACETAMINOPHEN [Concomitant]
  28. ZOLPIDEM TARTRATE [Concomitant]
  29. SEVELAMER HYDROCHLORIDE (SEVELAMER HYDROCHLORIDE) [Concomitant]

REACTIONS (9)
  - ABDOMINAL PAIN [None]
  - ASCITES [None]
  - CARDIAC ARREST [None]
  - DIARRHOEA [None]
  - ENTERITIS [None]
  - ENTEROCOCCAL BACTERAEMIA [None]
  - MENTAL STATUS CHANGES [None]
  - MUCOSAL INFLAMMATION [None]
  - PANCYTOPENIA [None]
